FAERS Safety Report 9909040 (Version 1)
Quarter: 2014Q1

REPORT INFORMATION
  Report Type: Spontaneous
  Country: CA (occurrence: CA)
  Receive Date: 20140219
  Receipt Date: 20140219
  Transmission Date: 20141002
  Serious: Yes (Other)
  Sender: FDA-Public Use
  Company Number: CA-B.I. PHARMACEUTICALS,INC./RIDGEFIELD-2014-BI-06759CN

PATIENT
  Age: 75 Year
  Sex: Female
  Weight: 90.71 kg

DRUGS (6)
  1. SPIRIVA [Suspect]
     Indication: PRODUCT USED FOR UNKNOWN INDICATION
     Route: 055
  2. ASAPHEN [Concomitant]
     Route: 065
  3. LIPITOR [Concomitant]
     Route: 065
  4. SALBUTAMOL HFA [Concomitant]
     Route: 055
  5. TEVETEN [Concomitant]
     Route: 065
  6. TIAZAC [Concomitant]
     Dosage: SUSTAINED RELEASE
     Route: 065

REACTIONS (4)
  - Blood glucose increased [Unknown]
  - Constipation [Unknown]
  - Hypertension [Unknown]
  - Drug ineffective [Unknown]
